FAERS Safety Report 10235386 (Version 1)
Quarter: 2014Q1

REPORT INFORMATION
  Report Type: Spontaneous
  Country: US (occurrence: None)
  Receive Date: 20140306
  Receipt Date: 20140306
  Transmission Date: 20141002
  Serious: Yes (Disabling, Other)
  Sender: FDA-Public Use
  Company Number: 163-21880-13092507

PATIENT
  Age: 55 Year
  Sex: Male

DRUGS (5)
  1. REVLIMID (LENALIDOMIDE) (15 MILLIGRAM, CAPSULES) [Suspect]
     Indication: PLASMA CELL MYELOMA
     Route: 048
     Dates: start: 200912
  2. PREDISONE (PREDNISONE) [Concomitant]
  3. VELCADE (BORTEZOMIB) [Concomitant]
  4. DEXAMETHASONE (DEXAMETHASONE) [Concomitant]
  5. CYTOXAN (CYCLOPHOSPHAMIDE) [Concomitant]

REACTIONS (3)
  - Deep vein thrombosis [None]
  - Plasma cell myeloma [None]
  - Monoclonal immunoglobulin present [None]
